FAERS Safety Report 7468411-8 (Version None)
Quarter: 2011Q2

REPORT INFORMATION
  Report Type: 
  Country: None (occurrence: None)
  Receive Date: 20110509
  Receipt Date: 20110503
  Transmission Date: 20111010
  Serious: Yes (Other)
  Sender: FDA-Public Use
  Company Number: FR-PFIZER INC-2011009377

PATIENT
  Age: 85 Year
  Sex: Female
  Weight: 70 kg

DRUGS (7)
  1. EFFEXOR [Concomitant]
  2. AZITHROMYCIN [Suspect]
     Indication: BRONCHITIS
     Dosage: 250 MG/DAY
     Dates: start: 20101101, end: 20110101
  3. NEBIVOLOL [Concomitant]
  4. NOCTAMID [Concomitant]
  5. COLIMYCINE [Concomitant]
     Indication: BRONCHITIS
     Dosage: UNK
     Dates: start: 20101101, end: 20110101
  6. PULMICORT [Concomitant]
  7. TRIVASTAL [Concomitant]

REACTIONS (4)
  - ILLUSION [None]
  - HALLUCINATION [None]
  - AGITATION [None]
  - TINNITUS [None]
